FAERS Safety Report 22307804 (Version 1)
Quarter: 2023Q2

REPORT INFORMATION
  Report Type: Spontaneous
  Country: US (occurrence: None)
  Receive Date: 20230511
  Receipt Date: 20230511
  Transmission Date: 20230722
  Serious: No
  Sender: FDA-Public Use
  Company Number: US-ROCHE-3136169

PATIENT
  Sex: Female
  Weight: 89.892 kg

DRUGS (1)
  1. OCREVUS [Suspect]
     Active Substance: OCRELIZUMAB
     Indication: Relapsing multiple sclerosis
     Dosage: YES
     Route: 042

REACTIONS (4)
  - Fatigue [Unknown]
  - Dyspnoea [Unknown]
  - Gait inability [Unknown]
  - Weight increased [Unknown]
